FAERS Safety Report 10582210 (Version 1)
Quarter: 2014Q4

REPORT INFORMATION
  Report Type: Spontaneous
  Country: AU (occurrence: AU)
  Receive Date: 20141113
  Receipt Date: 20141113
  Transmission Date: 20150529
  Serious: Yes (Other)
  Sender: FDA-Public Use
  Company Number: AU-PFIZER INC-2014310300

PATIENT
  Sex: Female

DRUGS (1)
  1. CELEBREX [Suspect]
     Active Substance: CELECOXIB
     Dosage: 100 MG, UP TO 4X/DAY

REACTIONS (4)
  - Pleurisy [Unknown]
  - Infection [Unknown]
  - Lung infection [Unknown]
  - Asthma [Unknown]
